FAERS Safety Report 5097399-2 (Version None)
Quarter: 2006Q3

REPORT INFORMATION
  Report Type: 
  Country: None (occurrence: None)
  Receive Date: 20060906
  Receipt Date: 20051026
  Transmission Date: 20061208
  Serious: Yes (Hospitalization)
  Sender: FDA-Public Use
  Company Number: US-SANOFI-SYNTHELABO-F03200500163

PATIENT
  Age: 76 Year
  Sex: Male

DRUGS (7)
  1. AVASTIN [Suspect]
     Indication: CARCINOID TUMOUR
     Route: 042
     Dates: start: 20050929, end: 20050929
  2. KYTRIL [Concomitant]
     Dosage: UNK
     Route: 048
     Dates: start: 20051003
  3. LOMOTIL [Concomitant]
     Dosage: UNK
     Route: 048
  4. S-1 (TEGAFUR, GIMERACIL, OTERACIL POTASSIUM) [Suspect]
     Indication: CARCINOID TUMOUR
     Route: 048
     Dates: start: 20050929, end: 20051011
  5. ZOFRAN [Concomitant]
     Dosage: EVERY 8 HOURS AS NEEDED (1 IN 8 HOURS)
     Route: 048
     Dates: start: 20050930
  6. OXALIPLATIN [Suspect]
     Indication: CARCINOID TUMOUR
     Route: 042
     Dates: start: 20050929, end: 20050929
  7. AMBIEN [Suspect]
     Route: 048
     Dates: start: 20051006

REACTIONS (15)
  - ASTHENIA [None]
  - DEHYDRATION [None]
  - DIARRHOEA [None]
  - DRUG ERUPTION [None]
  - DRUG HYPERSENSITIVITY [None]
  - DYSPHAGIA [None]
  - FLATULENCE [None]
  - GASTROINTESTINAL DISORDER [None]
  - INSOMNIA [None]
  - OESOPHAGEAL INFECTION [None]
  - OESOPHAGITIS [None]
  - RASH [None]
  - RASH MORBILLIFORM [None]
  - SUPRAVENTRICULAR EXTRASYSTOLES [None]
  - UMBILICAL HERNIA [None]
